FAERS Safety Report 11634031 (Version 1)
Quarter: 2015Q4

REPORT INFORMATION
  Report Type: Spontaneous
  Country: US (occurrence: US)
  Receive Date: 20151015
  Receipt Date: 20151015
  Transmission Date: 20160304
  Serious: Yes (Hospitalization, Other)
  Sender: FDA-Public Use
  Company Number: US-ASTRAZENECA-2015SE98916

PATIENT
  Age: 25697 Day
  Sex: Female
  Weight: 75.8 kg

DRUGS (5)
  1. LOSARTAN. [Concomitant]
     Active Substance: LOSARTAN
     Indication: BLOOD PRESSURE ABNORMAL
  2. FASLODEX [Suspect]
     Active Substance: FULVESTRANT
     Indication: BREAST CANCER FEMALE
     Route: 030
  3. METFORMIN [Concomitant]
     Active Substance: METFORMIN HYDROCHLORIDE
     Indication: DIABETES MELLITUS
  4. METOPROLOL TARTRATE. [Concomitant]
     Active Substance: METOPROLOL TARTRATE
     Indication: BLOOD PRESSURE ABNORMAL
  5. FASLODEX [Suspect]
     Active Substance: FULVESTRANT
     Indication: BREAST CANCER FEMALE
     Route: 030
     Dates: start: 1996

REACTIONS (15)
  - Hyperhidrosis [Unknown]
  - Intentional product misuse [Unknown]
  - Metastases to lung [Unknown]
  - Pain [Unknown]
  - Dyspnoea exertional [Unknown]
  - Fungal skin infection [Unknown]
  - Malaise [Unknown]
  - Breast pain [Unknown]
  - Spinal column stenosis [Unknown]
  - Weight decreased [Unknown]
  - Injection site reaction [Unknown]
  - Cough [Unknown]
  - Eating disorder [Unknown]
  - Bone density decreased [Unknown]
  - Personality change [Unknown]

NARRATIVE: CASE EVENT DATE: 20150826
